FAERS Safety Report 16715654 (Version 1)
Quarter: 2019Q3

REPORT INFORMATION
  Report Type: Spontaneous
  Country: FR (occurrence: FR)
  Receive Date: 20190819
  Receipt Date: 20190819
  Transmission Date: 20191005
  Serious: Yes (Hospitalization, Other)
  Sender: FDA-Public Use
  Company Number: FR-GLAXOSMITHKLINE-FR2019149230

PATIENT
  Age: 45 Year
  Sex: Male

DRUGS (4)
  1. DAFALGAN [Suspect]
     Active Substance: ACETAMINOPHEN
     Indication: TOXICITY TO VARIOUS AGENTS
     Dosage: 8 G, UNK
     Route: 048
     Dates: start: 20181109, end: 20181109
  2. NICORETTE [Suspect]
     Active Substance: NICOTINE
     Indication: TOXICITY TO VARIOUS AGENTS
     Dosage: 28 MG, UNK
     Route: 048
     Dates: start: 20181109, end: 20181109
  3. DAFALGAN CODEINE [Suspect]
     Active Substance: ACETAMINOPHEN\CODEINE PHOSPHATE
     Indication: TOXICITY TO VARIOUS AGENTS
     Dosage: 8 DF, UNK
     Route: 048
     Dates: start: 20181109, end: 20181109
  4. BACLOFENE [Suspect]
     Active Substance: BACLOFEN
     Indication: TOXICITY TO VARIOUS AGENTS
     Dosage: 50 DF, UNK
     Route: 048
     Dates: start: 20181109, end: 20181109

REACTIONS (6)
  - Coma [Recovered/Resolved]
  - Vomiting [Recovered/Resolved]
  - Tremor [Recovered/Resolved]
  - Toxicity to various agents [Recovered/Resolved]
  - Abdominal pain [Recovered/Resolved]
  - Hepatocellular injury [Unknown]

NARRATIVE: CASE EVENT DATE: 20181109
